FAERS Safety Report 9436804 (Version 4)
Quarter: 2018Q4

REPORT INFORMATION
  Report Type: Spontaneous
  Country: GB (occurrence: GB)
  Receive Date: 20130802
  Receipt Date: 20181010
  Transmission Date: 20190205
  Serious: Yes (Other)
  Sender: FDA-Public Use
  Company Number: GB-RANBAXY-2013R1-71640

PATIENT
  Age: 55 Year
  Sex: Female
  Weight: 83.6 kg

DRUGS (4)
  1. ATORVASTATIN [Suspect]
     Active Substance: ATORVASTATIN
     Indication: BLOOD CHOLESTEROL INCREASED
     Dosage: UNK
     Route: 065
     Dates: start: 20130411, end: 20130601
  2. FLUOXETINE [Concomitant]
     Active Substance: FLUOXETINE HYDROCHLORIDE
     Indication: GRIEF REACTION
     Dosage: UNK
     Route: 065
     Dates: start: 2010
  3. AMLODIPINE [Concomitant]
     Active Substance: AMLODIPINE BESYLATE
     Indication: HYPERTENSION
     Dosage: UNK
     Route: 065
     Dates: start: 2003
  4. LEVOTHYROXINE. [Concomitant]
     Active Substance: LEVOTHYROXINE
     Indication: HYPOTHYROIDISM
     Dosage: MORE THAN 20 YEARS
     Route: 065

REACTIONS (8)
  - Depressed mood [Recovered/Resolved]
  - Paranoia [Recovered/Resolved]
  - Muscular weakness [Recovered/Resolved]
  - Personality change [Recovered/Resolved]
  - Anxiety [Recovered/Resolved]
  - Movement disorder [Recovered/Resolved]
  - Depression [Unknown]
  - Fatigue [Recovered/Resolved]

NARRATIVE: CASE EVENT DATE: 20130425
